FAERS Safety Report 21197046 (Version 4)
Quarter: 2025Q1

REPORT INFORMATION
  Report Type: Report from Study
  Country: IL (occurrence: IL)
  Receive Date: 20220810
  Receipt Date: 20250220
  Transmission Date: 20250408
  Serious: Yes (Other)
  Sender: TAKEDA
  Company Number: IL-SHIRE-IL201934370AA

PATIENT
  Age: 33 Year
  Sex: Female

DRUGS (6)
  1. VELAGLUCERASE ALFA [Suspect]
     Active Substance: VELAGLUCERASE ALFA
     Indication: Gaucher^s disease
     Dosage: 5 DOSAGE FORM, MONTHLY
     Dates: start: 19911105
  2. VELAGLUCERASE ALFA [Suspect]
     Active Substance: VELAGLUCERASE ALFA
     Dosage: 5 DOSAGE FORM, Q2WEEKS
     Dates: start: 20151105
  3. VELAGLUCERASE ALFA [Suspect]
     Active Substance: VELAGLUCERASE ALFA
     Dosage: 5 DOSAGE FORM, Q2WEEKS
     Dates: start: 20151105
  4. VELAGLUCERASE ALFA [Suspect]
     Active Substance: VELAGLUCERASE ALFA
     Dosage: 5 DOSAGE FORM, Q2WEEKS
  5. VELAGLUCERASE ALFA [Suspect]
     Active Substance: VELAGLUCERASE ALFA
     Dosage: 5 DOSAGE FORM, Q2WEEKS
  6. VELAGLUCERASE ALFA [Suspect]
     Active Substance: VELAGLUCERASE ALFA
     Dosage: UNK UNK, Q2WEEKS

REACTIONS (5)
  - COVID-19 [Not Recovered/Not Resolved]
  - Pregnancy [Recovered/Resolved]
  - Product availability issue [Unknown]
  - Product dose omission issue [Unknown]
  - Inappropriate schedule of product administration [Unknown]

NARRATIVE: CASE EVENT DATE: 20250121
